FAERS Safety Report 7745858-3 (Version None)
Quarter: 2011Q3

REPORT INFORMATION
  Report Type: 
  Country: None (occurrence: None)
  Receive Date: 20110908
  Receipt Date: 20110824
  Transmission Date: 20111222
  Serious: Yes (Life-Threatening, Hospitalization, Other)
  Sender: FDA-Public Use
  Company Number: AUR-APL-2011-04777

PATIENT
  Age: 65 Year
  Sex: Male

DRUGS (8)
  1. NORTRIPTYLINE HCL [Concomitant]
  2. TRAMADOL HYDROCHLORIDE [Concomitant]
  3. TOPIRAMATE [Suspect]
     Indication: HEADACHE
     Dosage: 100 MG (50 MG, 2 IN 1 D), ORAL
     Route: 048
     Dates: start: 20100701, end: 20110709
  4. RIZATRIPTAN (RIZATRIPTAN) [Concomitant]
  5. ACETAMINOPHEN [Concomitant]
  6. ERYTHROMYCIN [Suspect]
     Indication: OROPHARYNGEAL PAIN
     Dosage: 2000 MG (500 MG, 4 IN 1 D), ORAL
     Route: 048
     Dates: start: 20110704, end: 20110708
  7. OMEPRAZOLE [Concomitant]
  8. ALBUTEROL SULFATE [Concomitant]

REACTIONS (1)
  - MYASTHENIC SYNDROME [None]
